FAERS Safety Report 5605307-8 (Version None)
Quarter: 2008Q1

REPORT INFORMATION
  Report Type: 
  Country: None (occurrence: None)
  Receive Date: 20080129
  Receipt Date: 20080116
  Transmission Date: 20080703
  Serious: Yes (Other)
  Sender: FDA-Public Use
  Company Number: CA-PFIZER INC-2007107080

PATIENT
  Sex: Male

DRUGS (11)
  1. ALDACTONE [Suspect]
     Route: 048
     Dates: start: 20071101, end: 20071201
  2. INSULIN [Concomitant]
  3. COUMADIN [Concomitant]
     Route: 048
  4. METFORMIN HCL [Concomitant]
     Route: 048
  5. FUROSEMIDE [Concomitant]
     Route: 048
  6. ATENOLOL [Concomitant]
     Route: 048
  7. LIPITOR [Concomitant]
     Route: 048
  8. GLYBURIDE [Concomitant]
     Route: 048
  9. AVAPRO [Concomitant]
     Route: 048
  10. NORVASC [Concomitant]
     Route: 048
  11. ALTACE [Concomitant]
     Route: 048

REACTIONS (2)
  - BLOOD GLUCOSE ABNORMAL [None]
  - HYPOKALAEMIA [None]
